FAERS Safety Report 18340853 (Version 2)
Quarter: 2020Q4

REPORT INFORMATION
  Report Type: Spontaneous
  Country: US (occurrence: US)
  Receive Date: 20201003
  Receipt Date: 20201119
  Transmission Date: 20210113
  Serious: No
  Sender: FDA-Public Use
  Company Number: US-009507513-2010USA000374

PATIENT
  Sex: Female
  Weight: 116.57 kg

DRUGS (1)
  1. NEXPLANON [Suspect]
     Active Substance: ETONOGESTREL
     Indication: CONTRACEPTION
     Dosage: 1 ROD EVERY 3 YEARS IN LEFT ARM
     Route: 059
     Dates: start: 20190219, end: 20200930

REACTIONS (4)
  - Device breakage [Recovered/Resolved]
  - Menorrhagia [Unknown]
  - Muscular weakness [Unknown]
  - Pain in extremity [Unknown]
